FAERS Safety Report 22254374 (Version 1)
Quarter: 2023Q2

REPORT INFORMATION
  Report Type: Spontaneous
  Country: CN (occurrence: CN)
  Receive Date: 20230426
  Receipt Date: 20230426
  Transmission Date: 20230722
  Serious: Yes (Life-Threatening)
  Sender: FDA-Public Use
  Company Number: CN-BAYER-2023A056418

PATIENT
  Age: 51 Year
  Sex: Male
  Weight: 62 kg

DRUGS (1)
  1. ULTRAVIST [Suspect]
     Active Substance: IOPROMIDE
     Indication: Computerised tomogram heart
     Dosage: 55 ML, ONCE, INTRAPUMP INJECTION
     Route: 042
     Dates: start: 20230417, end: 20230417

REACTIONS (9)
  - Contrast media allergy [Recovered/Resolved]
  - Shock [Recovered/Resolved]
  - Palpitations [Recovered/Resolved]
  - Rash erythematous [Recovered/Resolved]
  - Erythema [Recovered/Resolved]
  - Skin warm [Recovered/Resolved]
  - Tachypnoea [Recovered/Resolved]
  - Blood pressure decreased [Recovered/Resolved]
  - Vision blurred [Recovered/Resolved]

NARRATIVE: CASE EVENT DATE: 20230417
